FAERS Safety Report 4432860-2 (Version None)
Quarter: 2004Q3

REPORT INFORMATION
  Report Type: 
  Country: None (occurrence: None)
  Receive Date: 20040823
  Receipt Date: 20040818
  Transmission Date: 20050211
  Serious: Yes (Hospitalization)
  Sender: FDA-Public Use
  Company Number: UKP04000328

PATIENT
  Age: 65 Year
  Sex: Female

DRUGS (10)
  1. DIDRONEL [Suspect]
     Indication: OSTEOPOROSIS
     Dosage: DAILY, ORAL
     Route: 048
     Dates: end: 20040720
  2. VIOXX [Suspect]
     Indication: OSTEOARTHRITIS
     Dosage: 12.5 MG, DAILY, ORAL
     Route: 048
     Dates: end: 20040720
  3. LANSOPRAZOLE [Concomitant]
  4. CALCICHEW D3 [Concomitant]
  5. HYDROXYZINE [Concomitant]
  6. THIAMINE (THIAMINE) [Concomitant]
  7. ATENOLOL [Concomitant]
  8. CO-CODAMOL (CODEINE PHOSPHATE) [Concomitant]
  9. FOLIC ACID [Concomitant]
  10. AMLODIPINE [Concomitant]

REACTIONS (7)
  - ABDOMINAL PAIN UPPER [None]
  - BLOOD UREA DECREASED [None]
  - HAEMATEMESIS [None]
  - HAEMOGLOBIN DECREASED [None]
  - HIATUS HERNIA [None]
  - OESOPHAGITIS [None]
  - PORTAL HYPERTENSIVE GASTROPATHY [None]
